FAERS Safety Report 7525542-1 (Version None)
Quarter: 2011Q2

REPORT INFORMATION
  Report Type: 
  Country: None (occurrence: None)
  Receive Date: 20110606
  Receipt Date: 20110525
  Transmission Date: 20111010
  Serious: Yes (Hospitalization)
  Sender: FDA-Public Use
  Company Number: CA-NOVOPROD-328874

PATIENT
  Sex: Female

DRUGS (4)
  1. APIDRA [Concomitant]
  2. VICTOZA [Suspect]
     Indication: PRODUCT USED FOR UNKNOWN INDICATION
     Dosage: UNK
     Route: 065
  3. NOVOLIN GE NPH PENFILL [Suspect]
     Indication: PRODUCT USED FOR UNKNOWN INDICATION
     Route: 065
  4. BENADRYL [Concomitant]

REACTIONS (5)
  - DEHYDRATION [None]
  - WEIGHT DECREASED [None]
  - INSULIN AUTOIMMUNE SYNDROME [None]
  - CONDITION AGGRAVATED [None]
  - HYPERSENSITIVITY [None]
